FAERS Safety Report 11623859 (Version 1)
Quarter: 2015Q4

REPORT INFORMATION
  Report Type: Spontaneous
  Country: US (occurrence: US)
  Receive Date: 20151013
  Receipt Date: 20151013
  Transmission Date: 20160304
  Serious: No
  Sender: FDA-Public Use
  Company Number: US-JNJFOC-20150500755

PATIENT
  Age: 65 Year
  Sex: Female
  Weight: 42.18 kg

DRUGS (3)
  1. TYLENOL [Suspect]
     Active Substance: ACETAMINOPHEN
     Route: 048
  2. TYLENOL [Suspect]
     Active Substance: ACETAMINOPHEN
     Indication: PAIN
     Dosage: 1-2 CAPLETS DAILY
     Route: 048
     Dates: end: 20150330
  3. ACETAMINOPHEN. [Suspect]
     Active Substance: ACETAMINOPHEN
     Indication: PAIN
     Dosage: 1-2 CAPLETS DAILY
     Route: 065

REACTIONS (3)
  - Alanine aminotransferase increased [Recovering/Resolving]
  - Incorrect dose administered [Unknown]
  - Gamma-glutamyltransferase increased [Recovering/Resolving]
